FAERS Safety Report 16075473 (Version 6)
Quarter: 2024Q3

REPORT INFORMATION
  Report Type: Report from Study
  Country: DE (occurrence: DE)
  Receive Date: 20190315
  Receipt Date: 20240904
  Transmission Date: 20241017
  Serious: Yes (Other)
  Sender: ROCHE
  Company Number: DE-ROCHE-2278716

PATIENT
  Age: 63 Year
  Sex: Female
  Weight: 65.0 kg

DRUGS (9)
  1. OCREVUS [Suspect]
     Active Substance: OCRELIZUMAB
     Indication: Relapsing multiple sclerosis
     Route: 042
     Dates: start: 20180726, end: 20180809
  2. METHYLPREDNISOLONE [Concomitant]
     Active Substance: METHYLPREDNISOLONE
     Indication: Premedication
     Route: 042
     Dates: start: 20180726, end: 20180809
  3. PRAMIPEXOLE [Concomitant]
     Active Substance: PRAMIPEXOLE\PRAMIPEXOLE DIHYDROCHLORIDE
     Indication: Restless legs syndrome
     Route: 048
  4. CLEMASTINE FUMARATE [Concomitant]
     Active Substance: CLEMASTINE FUMARATE
     Indication: Premedication
     Route: 042
     Dates: start: 20180726, end: 20180809
  5. ACETAMINOPHEN [Concomitant]
     Active Substance: ACETAMINOPHEN
     Indication: Premedication
     Route: 048
     Dates: start: 20180726, end: 20180809
  6. FINGOLIMOD [Concomitant]
     Active Substance: FINGOLIMOD
  7. DACLIZUMAB [Concomitant]
     Active Substance: DACLIZUMAB
  8. PLEGRIDY [Concomitant]
     Active Substance: PEGINTERFERON BETA-1A
  9. INTERFERON BETA-1A [Concomitant]
     Active Substance: INTERFERON BETA-1A
     Route: 058

REACTIONS (1)
  - Multiple sclerosis [Recovered/Resolved]

NARRATIVE: CASE EVENT DATE: 20181001
